FAERS Safety Report 18590380 (Version 6)
Quarter: 2022Q2

REPORT INFORMATION
  Report Type: Spontaneous
  Country: US (occurrence: US)
  Receive Date: 20201208
  Receipt Date: 20220401
  Transmission Date: 20220721
  Serious: No
  Sender: FDA-Public Use
  Company Number: US-PFIZER INC-2020397764

PATIENT
  Age: 44 Year
  Sex: Male
  Weight: 108.86 kg

DRUGS (4)
  1. GENOTROPIN [Suspect]
     Active Substance: SOMATROPIN
     Indication: Blood testosterone decreased
     Dosage: 0.4 MG, DAILY
  2. GENOTROPIN [Suspect]
     Active Substance: SOMATROPIN
     Indication: Blood growth hormone abnormal
     Dosage: 4 MG, DAILY (ROTATING SITES ACROSS ABDOMEN FROM FAR RIGHT TO FAR LEFT, AND UP AND DOWN)
     Dates: start: 202010
  3. GENOTROPIN [Suspect]
     Active Substance: SOMATROPIN
     Dosage: 4 MG, DAILY (ROTATING SITES ACROSS ABDOMEN FROM FAR RIGHT TO FAR LEFT, AND UP AND DOWN)
     Dates: start: 202010
  4. GENOTROPIN [Suspect]
     Active Substance: SOMATROPIN
     Dosage: UNK (HALF OF DOSE)

REACTIONS (7)
  - Wrong technique in device usage process [Unknown]
  - Accidental exposure to product [Unknown]
  - Exposure via skin contact [Unknown]
  - Device breakage [Unknown]
  - Device leakage [Unknown]
  - Product dose omission issue [Unknown]
  - Intentional product use issue [Unknown]

NARRATIVE: CASE EVENT DATE: 20201130
